FAERS Safety Report 9737554 (Version 1)
Quarter: 2013Q4

REPORT INFORMATION
  Report Type: Spontaneous
  Country: US (occurrence: US)
  Receive Date: 20131207
  Receipt Date: 20131207
  Transmission Date: 20140711
  Serious: No
  Sender: FDA-Public Use
  Company Number: US-B.I. PHARMACEUTICALS,INC./RIDGEFIELD-2013-BI-38487PF

PATIENT
  Sex: Male

DRUGS (10)
  1. SPIRIVA [Suspect]
  2. ALBUTEROL INHALER [Concomitant]
  3. QVAR [Concomitant]
  4. VIT D [Concomitant]
  5. LEVOTHYROXINE [Concomitant]
  6. AST [Concomitant]
  7. ALBUTEROL NEBULIZER [Concomitant]
  8. CHANTIX [Concomitant]
     Dosage: 0.5 G
     Route: 048
  9. CHANTIX [Concomitant]
     Dosage: 5 G
     Route: 048
  10. CHANTIX [Concomitant]
     Dosage: 2 MG
     Route: 048

REACTIONS (1)
  - Drug hypersensitivity [Unknown]
